FAERS Safety Report 8381289-3 (Version None)
Quarter: 2012Q2

REPORT INFORMATION
  Report Type: 
  Country: None (occurrence: None)
  Receive Date: 20120523
  Receipt Date: 20120509
  Transmission Date: 20120825
  Serious: Yes (Other)
  Sender: FDA-Public Use
  Company Number: NL-CELGENEUS-114-20785-12051152

PATIENT

DRUGS (3)
  1. PREDNISONE [Suspect]
     Indication: MULTIPLE MYELOMA
     Route: 065
     Dates: start: 20100726, end: 20110112
  2. THALIDOMIDE [Suspect]
     Indication: MULTIPLE MYELOMA
     Route: 048
     Dates: start: 20100726, end: 20110112
  3. MELPHALAN HYDROCHLORIDE [Suspect]
     Indication: MULTIPLE MYELOMA
     Route: 065
     Dates: start: 20100726, end: 20110112

REACTIONS (1)
  - GASTRIC NEOPLASM [None]
